FAERS Safety Report 13351158 (Version 1)
Quarter: 2017Q1

REPORT INFORMATION
  Report Type: Report from Study
  Country: MX (occurrence: MX)
  Receive Date: 20170320
  Receipt Date: 20170320
  Transmission Date: 20170429
  Serious: Yes (Other)
  Sender: FDA-Public Use
  Company Number: PHHY2017MX015716

PATIENT
  Sex: Female

DRUGS (1)
  1. RITALIN LA [Suspect]
     Active Substance: METHYLPHENIDATE HYDROCHLORIDE
     Indication: ATTENTION DEFICIT/HYPERACTIVITY DISORDER
     Dosage: 1 DF, QD
     Route: 065
     Dates: end: 20170221

REACTIONS (6)
  - Decreased activity [Unknown]
  - Dysgraphia [Unknown]
  - Electroencephalogram abnormal [Unknown]
  - Abnormal behaviour [Unknown]
  - Daydreaming [Unknown]
  - Performance status decreased [Unknown]
